FAERS Safety Report 9688477 (Version 5)
Quarter: 2014Q2

REPORT INFORMATION
  Report Type: Spontaneous
  Country: GR (occurrence: GR)
  Receive Date: 20131114
  Receipt Date: 20140516
  Transmission Date: 20141212
  Serious: Yes (Death, Hospitalization)
  Sender: FDA-Public Use
  Company Number: GR-AMGEN-GRCSP2013079687

PATIENT
  Age: 94 Year
  Sex: Male
  Weight: 67 kg

DRUGS (3)
  1. ARANESP [Suspect]
     Indication: ANAEMIA
     Dosage: QWK
     Route: 058
     Dates: start: 20130910, end: 20131010
  2. MICARDIS [Concomitant]
     Dosage: UNK
     Dates: start: 2011
  3. SERETIDE DISCUS [Concomitant]
     Dosage: UNK UNK, AS NECESSARY

REACTIONS (3)
  - Acute hepatitis B [Fatal]
  - Asthenia [Unknown]
  - Fatigue [Unknown]
